FAERS Safety Report 4894733-0 (Version None)
Quarter: 2006Q1

REPORT INFORMATION
  Report Type: 
  Country: None (occurrence: None)
  Receive Date: 20060127
  Receipt Date: 20060127
  Transmission Date: 20060701
  Serious: Yes (Hospitalization)
  Sender: FDA-Public Use
  Company Number: None

PATIENT
  Age: 75 Year
  Sex: Male

DRUGS (10)
  1. HEPARIN [Suspect]
     Indication: THROMBOSIS PROPHYLAXIS
     Dosage: 5000 UNITS SQ TD
     Route: 058
     Dates: start: 20051101, end: 20051102
  2. CEFEPIME [Suspect]
     Indication: INFECTION
     Dosage: 1 GM IV Q 24 H
     Route: 042
     Dates: start: 20051031, end: 20051102
  3. CEFEPIME HCL [Concomitant]
  4. CIPROFLOXACIN IN DEXTROSE 5% [Concomitant]
  5. DEXTROSE 5%/SODIUM CHLORIDE [Concomitant]
  6. HUMULIN R [Concomitant]
  7. LORAZEPAM [Concomitant]
  8. MORPHINE SULFATE [Concomitant]
  9. NOREPINEPHRINE [Concomitant]
  10. THIAMINE HCL [Concomitant]

REACTIONS (2)
  - LABORATORY TEST ABNORMAL [None]
  - THROMBOCYTOPENIA [None]
